FAERS Safety Report 5503047-7 (Version None)
Quarter: 2007Q4

REPORT INFORMATION
  Report Type: 
  Country: None (occurrence: None)
  Receive Date: 20071031
  Receipt Date: 20071019
  Transmission Date: 20080405
  Serious: Yes (Other)
  Sender: FDA-Public Use
  Company Number: US-ROCHE-526636

PATIENT
  Age: 65 Year
  Sex: Female

DRUGS (14)
  1. IBANDRONATE SODIUM [Suspect]
     Indication: DRUG USE FOR UNKNOWN INDICATION
     Route: 065
  2. NEXIUM [Concomitant]
  3. METHADONE HCL [Concomitant]
  4. VICODIN [Concomitant]
  5. MELOXICAM [Concomitant]
  6. LORAZEPAM [Concomitant]
  7. SINGULAIR [Concomitant]
     Dosage: DRUG REPORTED AS 'SINGULAR'
  8. ARICEPT [Concomitant]
  9. NAMENDA [Concomitant]
  10. RISPERDAL [Concomitant]
     Dosage: DRUG REPORTED AS 'RISPERTIAL'
  11. FUROSEMIDE [Concomitant]
  12. K-DUR 10 [Concomitant]
  13. UNSPECIFIED MEDICATION [Concomitant]
     Dosage: DRUG REPORTED AS 'ESTABOLAM'
  14. FOSAMAX [Concomitant]

REACTIONS (1)
  - VERTEBROPLASTY [None]
